FAERS Safety Report 9742132 (Version 1)
Quarter: 2013Q4

REPORT INFORMATION
  Report Type: Spontaneous
  Country: US (occurrence: US)
  Receive Date: 20131210
  Receipt Date: 20131210
  Transmission Date: 20140711
  Serious: No
  Sender: FDA-Public Use
  Company Number: US-ENDO PHARMACEUTICALS INC.-PRED20120036

PATIENT
  Age: 86 Year
  Sex: Female

DRUGS (6)
  1. PREDNISONE TABLETS 10MG [Suspect]
     Indication: URTICARIA
     Dosage: UNK
     Route: 048
     Dates: start: 20120418, end: 20120420
  2. PREDNISONE TABLETS 10MG [Suspect]
     Indication: RASH PRURITIC
     Dosage: UNK
     Route: 048
     Dates: start: 20120420, end: 201205
  3. PREDNISONE TABLETS 10MG [Suspect]
     Indication: SKIN BURNING SENSATION
  4. ALLEGRA [Suspect]
     Indication: URTICARIA
     Route: 048
     Dates: start: 20120419, end: 201205
  5. ALLEGRA [Suspect]
     Indication: RASH PRURITIC
     Route: 048
     Dates: start: 20120528, end: 20120602
  6. ALLEGRA [Suspect]
     Indication: SKIN BURNING SENSATION

REACTIONS (3)
  - Malaise [Recovered/Resolved]
  - Dizziness [Recovered/Resolved]
  - Drug ineffective [Recovering/Resolving]
